FAERS Safety Report 11914970 (Version 1)
Quarter: 2016Q1

REPORT INFORMATION
  Report Type: Spontaneous
  Country: JP (occurrence: JP)
  Receive Date: 20160113
  Receipt Date: 20160113
  Transmission Date: 20160526
  Serious: Yes (Other)
  Sender: FDA-Public Use
  Company Number: PHJP2016JP000710

PATIENT
  Age: 86 Year
  Sex: Female

DRUGS (1)
  1. VOLTAREN [Suspect]
     Active Substance: DICLOFENAC SODIUM
     Indication: BACK PAIN
     Dosage: 1 DF, QD
     Route: 048

REACTIONS (6)
  - Back pain [Unknown]
  - Concomitant disease progression [Unknown]
  - Peripheral swelling [Unknown]
  - Abdominal distension [Unknown]
  - Feeding disorder [Unknown]
  - Altered state of consciousness [Unknown]
